FAERS Safety Report 5165207-7 (Version None)
Quarter: 2006Q4

REPORT INFORMATION
  Report Type: 
  Country: None (occurrence: None)
  Receive Date: 20061124
  Receipt Date: 20061113
  Transmission Date: 20070319
  Serious: Yes (Other)
  Sender: FDA-Public Use
  Company Number: 2006135721

PATIENT
  Age: 77 Year
  Sex: Female

DRUGS (1)
  1. ARTHROTEC [Suspect]
     Indication: OSTEOARTHRITIS
     Dosage: (2 IN 1 D), ORAL
     Route: 048
     Dates: start: 20051123, end: 20060214

REACTIONS (3)
  - GASTRIC ULCER [None]
  - MELAENA [None]
  - UPPER GASTROINTESTINAL HAEMORRHAGE [None]
